FAERS Safety Report 9039524 (Version 1)
Quarter: 2013Q1

REPORT INFORMATION
  Report Type: Spontaneous
  Country: US (occurrence: US)
  Receive Date: 20130129
  Receipt Date: 20130129
  Transmission Date: 20140127
  Serious: No
  Sender: FDA-Public Use
  Company Number: US-PFIZER INC-2013034059

PATIENT
  Age: 53 Year
  Sex: Female
  Weight: 61.22 kg

DRUGS (4)
  1. LYRICA [Suspect]
     Indication: NEURALGIA
     Dosage: 75 MG, 3X/DAY
     Dates: end: 201301
  2. VALIUM [Concomitant]
     Indication: ANXIETY
     Dosage: 10 MG, 2X/DAY
  3. NORCO [Concomitant]
     Indication: PAIN
     Dosage: 325 MG, DAILY
  4. SOMA [Concomitant]
     Indication: MUSCLE RELAXANT THERAPY
     Dosage: 350 MG, 4X/DAY

REACTIONS (3)
  - Irritability [Unknown]
  - Hyperhidrosis [Unknown]
  - Pruritus [Not Recovered/Not Resolved]
